FAERS Safety Report 20876143 (Version 1)
Quarter: 2022Q2

REPORT INFORMATION
  Report Type: Spontaneous
  Country: US (occurrence: US)
  Receive Date: 20220526
  Receipt Date: 20220526
  Transmission Date: 20220720
  Serious: No
  Sender: FDA-Public Use
  Company Number: US-NOVEN PHARMACEUTICALS, INC.-2021-NOV-US003740

PATIENT
  Sex: Female

DRUGS (1)
  1. DAYTRANA [Suspect]
     Active Substance: METHYLPHENIDATE
     Indication: Product used for unknown indication
     Dosage: 10 MG/9 HOUR, UNKNOWN
     Route: 062

REACTIONS (3)
  - Adhesive tape use [Not Recovered/Not Resolved]
  - Product adhesion issue [Recovered/Resolved]
  - No adverse event [Unknown]
